FAERS Safety Report 16730685 (Version 3)
Quarter: 2020Q1

REPORT INFORMATION
  Report Type: Report from Study
  Country: None (occurrence: CH)
  Receive Date: 20190822
  Receipt Date: 20200123
  Transmission Date: 20200409
  Serious: Yes (Hospitalization)
  Sender: FDA-Public Use
  Company Number: CH-ABBVIE-19K-151-2893457-00

PATIENT
  Age: 73 Year
  Sex: Female
  Weight: 56 kg

DRUGS (7)
  1. HUMIRA [Suspect]
     Active Substance: ADALIMUMAB
     Route: 058
  2. HUMIRA [Suspect]
     Active Substance: ADALIMUMAB
     Indication: PSORIASIS
     Route: 058
     Dates: start: 20120413
  3. HUMIRA [Suspect]
     Active Substance: ADALIMUMAB
     Indication: ARTHRITIS
     Route: 058
     Dates: start: 20160413, end: 20180915
  4. ASPIRIN CARDIO [Concomitant]
     Active Substance: ASPIRIN
     Indication: HYPERTENSION
  5. DE-URSIL [Concomitant]
     Indication: GOUT
  6. AMLODIPIN [Concomitant]
     Active Substance: AMLODIPINE BESYLATE
     Indication: HYPERTENSION
     Route: 048
  7. HUMIRA [Suspect]
     Active Substance: ADALIMUMAB
     Route: 058

REACTIONS (6)
  - Flatulence [Not Recovered/Not Resolved]
  - Influenza like illness [Recovered/Resolved]
  - Actinic keratosis [Not Recovered/Not Resolved]
  - Osteoarthritis [Recovered/Resolved]
  - Flatulence [Recovered/Resolved]
  - Eczema [Not Recovered/Not Resolved]

NARRATIVE: CASE EVENT DATE: 2016
